FAERS Safety Report 4666585-5 (Version None)
Quarter: 2005Q2

REPORT INFORMATION
  Report Type: 
  Country: None (occurrence: None)
  Receive Date: 20050518
  Receipt Date: 20050512
  Transmission Date: 20051028
  Serious: Yes (Life-Threatening, Hospitalization, Other)
  Sender: FDA-Public Use
  Company Number: HQWYE696512MAY05

PATIENT
  Age: 50 Year
  Sex: Male
  Weight: 133.93 kg

DRUGS (1)
  1. (CYCLOSPORINE, CONTROL FOR SIROLIMUS, CAPSULE, SOFT GELATIN) [Suspect]
     Indication: PROPHYLAXIS AGAINST TRANSPLANT REJECTION
     Dosage: 50 MG 2X PER 1 DAY, ORAL
     Route: 048
     Dates: start: 20020405

REACTIONS (1)
  - HEPATIC NEOPLASM MALIGNANT [None]
